FAERS Safety Report 8644902 (Version 2)
Quarter: 2013Q1

REPORT INFORMATION
  Report Type: Spontaneous
  Country: FR (occurrence: None)
  Receive Date: 20120619
  Receipt Date: 20130213
  Transmission Date: 20140127
  Serious: Yes (Other)
  Sender: FDA-Public Use
  Company Number: 2012-002183

PATIENT
  Age: 59 Year
  Sex: Female

DRUGS (5)
  1. ACTONEL (RISEDRONATE SODIUM) TABLET [Suspect]
     Indication: OSTEOPOROSIS
     Dates: end: 201111
  2. ORBENIN [Suspect]
     Indication: BREAST ABSCESS
     Dosage: 2 GRAMS DAILY, ORAL
     Route: 048
     Dates: start: 20110912, end: 20110920
  3. ACETAMINOPHEN [Suspect]
     Dosage: 3 GRAMS, DAILY, ORAL
     Route: 048
     Dates: end: 201111
  4. FENOFIBRATE [Suspect]
     Indication: HYPERCHOLESTEROLAEMIA
     Dosage: ORAL
     Route: 048
     Dates: end: 201111
  5. CALCIUM + D3 [Suspect]
     Indication: OSTEOPOROSIS
     Dates: end: 201111

REACTIONS (5)
  - Cholestasis [None]
  - Weight decreased [None]
  - Chronic hepatitis [None]
  - Jaundice [None]
  - Fatigue [None]
